FAERS Safety Report 25675428 (Version 1)
Quarter: 2025Q3

REPORT INFORMATION
  Report Type: Report from Study
  Country: ZA (occurrence: ZA)
  Receive Date: 20250813
  Receipt Date: 20250813
  Transmission Date: 20251021
  Serious: Yes (Hospitalization)
  Sender: ROCHE
  Company Number: ZA-ROCHE-10000191587

PATIENT
  Sex: Female

DRUGS (2)
  1. VABYSMO [Suspect]
     Active Substance: FARICIMAB-SVOA
     Indication: Macular degeneration
     Route: 065
     Dates: start: 20241120
  2. VABYSMO [Suspect]
     Active Substance: FARICIMAB-SVOA
     Route: 050

REACTIONS (2)
  - Off label use [Unknown]
  - Fall [Unknown]
